APPROVED DRUG PRODUCT: SENSIPAR
Active Ingredient: CINACALCET HYDROCHLORIDE
Strength: EQ 90MG BASE
Dosage Form/Route: TABLET;ORAL
Application: N021688 | Product #003
Applicant: AMGEN INC
Approved: Mar 8, 2004 | RLD: Yes | RS: No | Type: DISCN

PATENTS:
Patent 7829595 | Expires: Sep 22, 2026
Patent 9375405 | Expires: Sep 22, 2026